FAERS Safety Report 5215699-X (Version None)
Quarter: 2007Q1

REPORT INFORMATION
  Report Type: 
  Country: None (occurrence: None)
  Receive Date: 20070123
  Receipt Date: 20070116
  Transmission Date: 20070707
  Serious: Yes (Death)
  Sender: FDA-Public Use
  Company Number: NZ-PURDUE-USA_2007_0026217

PATIENT
  Age: 22 Year
  Sex: Female

DRUGS (2)
  1. DIHYDROCODEINE BITARTRATE (SIMILAR TO ANDA 88-584) [Suspect]
     Indication: DRUG USE FOR UNKNOWN INDICATION
     Dosage: UNK, SINGLE
     Route: 048
     Dates: start: 20031208, end: 20031208
  2. CITALOPRAM [Suspect]
     Indication: DRUG USE FOR UNKNOWN INDICATION
     Dosage: 1.72 GRAM, SINGLE
     Route: 048
     Dates: start: 20031208, end: 20031208

REACTIONS (5)
  - CARDIAC ARREST [None]
  - COMPLETED SUICIDE [None]
  - DRUG INTERACTION [None]
  - RESPIRATORY ARREST [None]
  - STUPOR [None]
